FAERS Safety Report 7418934-2 (Version None)
Quarter: 2011Q2

REPORT INFORMATION
  Report Type: 
  Country: None (occurrence: None)
  Receive Date: 20110406
  Receipt Date: 20110328
  Transmission Date: 20111010
  Serious: Yes (Other)
  Sender: FDA-Public Use
  Company Number: GB-1185600

PATIENT
  Age: 77 Year
  Sex: Female

DRUGS (2)
  1. FLUORESCITE 10% INJECTION (FLUORESCEIN) [Suspect]
     Indication: ANGIOGRAM RETINA
     Dosage: 4ML INTRAVENOUS BOLUS
     Route: 040
     Dates: start: 20110308, end: 20110308
  2. STATIN [Concomitant]

REACTIONS (5)
  - INCORRECT ROUTE OF DRUG ADMINISTRATION [None]
  - CHOKING SENSATION [None]
  - CIRCULATORY COLLAPSE [None]
  - PAIN [None]
  - INJECTION SITE EXTRAVASATION [None]
